FAERS Safety Report 14237694 (Version 3)
Quarter: 2017Q4

REPORT INFORMATION
  Report Type: Report from Study
  Country: US (occurrence: US)
  Receive Date: 20171129
  Receipt Date: 20171225
  Transmission Date: 20180321
  Serious: Yes (Hospitalization, Other)
  Sender: FDA-Public Use
  Company Number: US-AMGEN-USACT2017177082

PATIENT
  Age: 77 Year
  Sex: Male
  Weight: 96.5 kg

DRUGS (1)
  1. TALIMOGENE LAHERPAREPVEC [Suspect]
     Active Substance: TALIMOGENE LAHERPAREPVEC
     Indication: UNDIFFERENTIATED SARCOMA
     Dosage: 4 ML X10^6 PFU/ML, ONE TIME
     Route: 036
     Dates: start: 20170925

REACTIONS (4)
  - Sleep disorder [Unknown]
  - Disorientation [Unknown]
  - Delirium [Unknown]
  - Pneumonia [Unknown]

NARRATIVE: CASE EVENT DATE: 20171123
